FAERS Safety Report 6089591-5 (Version None)
Quarter: 2009Q1

REPORT INFORMATION
  Report Type: 
  Country: None (occurrence: None)
  Receive Date: 20090224
  Receipt Date: 20090210
  Transmission Date: 20090719
  Serious: Yes (Death)
  Sender: FDA-Public Use
  Company Number: US-BAXTER-2008BH013425

PATIENT
  Age: 66 Year
  Sex: Female
  Weight: 115 kg

DRUGS (58)
  1. HEPARIN SODIUM INJECTION [Suspect]
     Indication: PROPHYLAXIS
     Route: 033
     Dates: start: 20071019, end: 20071019
  2. HEPARIN SODIUM INJECTION [Suspect]
     Route: 033
     Dates: start: 20071021, end: 20071021
  3. HEPARIN SODIUM INJECTION [Suspect]
     Route: 033
     Dates: start: 20071025, end: 20071025
  4. HEPARIN SODIUM INJECTION [Suspect]
     Route: 033
     Dates: start: 20071024, end: 20071024
  5. HEPARIN SODIUM INJECTION [Suspect]
     Route: 033
     Dates: start: 20071029, end: 20071029
  6. HEPARIN SODIUM INJECTION [Suspect]
     Route: 033
     Dates: start: 20071031, end: 20071031
  7. HEPARIN SODIUM INJECTION [Suspect]
     Route: 033
     Dates: start: 20071102, end: 20071102
  8. HEPARIN SODIUM INJECTION [Suspect]
     Route: 033
     Dates: start: 20071105, end: 20071105
  9. HEPARIN SODIUM INJECTION [Suspect]
     Route: 033
     Dates: start: 20071109, end: 20071109
  10. HEPARIN SODIUM INJECTION [Suspect]
     Route: 033
     Dates: start: 20071110, end: 20071110
  11. HEPARIN SODIUM INJECTION [Suspect]
     Route: 033
     Dates: start: 20071111, end: 20071111
  12. HEPARIN SODIUM INJECTION [Suspect]
     Route: 033
     Dates: start: 20071115, end: 20071115
  13. HEPARIN SODIUM INJECTION [Suspect]
     Route: 033
     Dates: start: 20071116, end: 20071116
  14. HEPARIN SODIUM INJECTION [Suspect]
     Route: 033
     Dates: start: 20071222, end: 20071222
  15. HEPARIN SODIUM INJECTION [Suspect]
     Route: 033
     Dates: start: 20071218, end: 20071218
  16. HEPARIN SODIUM INJECTION [Suspect]
     Route: 033
     Dates: start: 20071214, end: 20071214
  17. HEPARIN SODIUM INJECTION [Suspect]
     Route: 033
     Dates: start: 20071212, end: 20071212
  18. HEPARIN SODIUM INJECTION [Suspect]
     Route: 033
     Dates: start: 20071206, end: 20071206
  19. HEPARIN SODIUM INJECTION [Suspect]
     Route: 033
     Dates: start: 20071204, end: 20071204
  20. HEPARIN SODIUM INJECTION [Suspect]
     Route: 033
     Dates: start: 20071202, end: 20071202
  21. HEPARIN SODIUM INJECTION [Suspect]
     Route: 033
     Dates: start: 20071130, end: 20071130
  22. HEPARIN SODIUM INJECTION [Suspect]
     Route: 033
     Dates: start: 20071124, end: 20071124
  23. HEPARIN SODIUM INJECTION [Suspect]
     Route: 033
     Dates: start: 20071118, end: 20071118
  24. IRON [Concomitant]
     Indication: DRUG USE FOR UNKNOWN INDICATION
     Route: 065
  25. ERYTHROPOIESIS STIMULATING AGENTS [Concomitant]
     Indication: DRUG USE FOR UNKNOWN INDICATION
     Route: 065
  26. METOCLOPRAMIDE [Concomitant]
     Indication: DRUG USE FOR UNKNOWN INDICATION
  27. HYDROXYZINE [Concomitant]
     Indication: PRURITUS
     Route: 048
  28. PROMETHAZINE [Concomitant]
     Indication: DRUG USE FOR UNKNOWN INDICATION
  29. ALLOPURINOL [Concomitant]
     Indication: DRUG USE FOR UNKNOWN INDICATION
     Route: 048
  30. GLIPIZIDE [Concomitant]
     Indication: BLOOD PRESSURE
     Route: 048
  31. ROCALTROL [Concomitant]
     Indication: DRUG USE FOR UNKNOWN INDICATION
  32. FLORINEF [Concomitant]
     Indication: DRUG USE FOR UNKNOWN INDICATION
  33. SENSIPAR [Concomitant]
     Indication: DRUG USE FOR UNKNOWN INDICATION
     Route: 048
  34. LOVASTATIN [Concomitant]
     Indication: BLOOD CHOLESTEROL
     Route: 048
  35. SUDAFED 12 HOUR [Concomitant]
     Indication: BLOOD PRESSURE
     Route: 048
  36. ACTOS [Concomitant]
     Indication: DRUG USE FOR UNKNOWN INDICATION
     Route: 048
  37. NEPHROCAPS [Concomitant]
     Indication: DRUG USE FOR UNKNOWN INDICATION
  38. RENAGEL [Concomitant]
     Indication: DRUG USE FOR UNKNOWN INDICATION
  39. KLOR-CON [Concomitant]
     Indication: DRUG USE FOR UNKNOWN INDICATION
  40. MIDRIN [Concomitant]
     Indication: BLOOD PRESSURE
  41. DESYREL [Concomitant]
     Indication: DRUG USE FOR UNKNOWN INDICATION
  42. NEURONTIN [Concomitant]
     Indication: DRUG USE FOR UNKNOWN INDICATION
  43. CELEXA [Concomitant]
     Indication: DRUG USE FOR UNKNOWN INDICATION
  44. IMODIUM A-D [Concomitant]
     Indication: DRUG USE FOR UNKNOWN INDICATION
  45. CITALOPRAM HYDROBROMIDE [Concomitant]
     Indication: DRUG USE FOR UNKNOWN INDICATION
     Route: 048
  46. TRAZODONE HCL [Concomitant]
     Indication: DRUG USE FOR UNKNOWN INDICATION
     Route: 048
  47. GABAPENTIN [Concomitant]
     Indication: DRUG USE FOR UNKNOWN INDICATION
     Route: 048
  48. NOVOLIN [Concomitant]
     Indication: DRUG USE FOR UNKNOWN INDICATION
  49. MIDODRINE [Concomitant]
     Indication: DRUG USE FOR UNKNOWN INDICATION
     Route: 048
  50. PROCRIT [Concomitant]
     Indication: DRUG USE FOR UNKNOWN INDICATION
     Route: 058
  51. LIDOCAINE 2% [Concomitant]
     Indication: DRUG USE FOR UNKNOWN INDICATION
     Route: 061
  52. TRIAMCINOLONE ACETONIDE [Concomitant]
     Indication: DRUG USE FOR UNKNOWN INDICATION
     Route: 061
  53. ACETAMINOPHEN AND HYDROCODONE BITARTRATE [Concomitant]
     Indication: DRUG USE FOR UNKNOWN INDICATION
     Route: 048
  54. MUPIROCIN [Concomitant]
     Indication: DRUG USE FOR UNKNOWN INDICATION
     Route: 061
  55. VITAMIN B COMPLEX CAP [Concomitant]
     Indication: DRUG USE FOR UNKNOWN INDICATION
     Route: 048
  56. ASCORBIC ACID [Concomitant]
     Indication: DRUG USE FOR UNKNOWN INDICATION
     Route: 048
  57. FOLIC ACID [Concomitant]
     Indication: DRUG USE FOR UNKNOWN INDICATION
     Route: 048
  58. VANCOMYCIN [Concomitant]
     Indication: PERITONITIS
     Route: 042

REACTIONS (26)
  - ABDOMINAL DISCOMFORT [None]
  - ABDOMINAL PAIN [None]
  - ABDOMINAL PAIN UPPER [None]
  - ANOREXIA [None]
  - ASTHENIA [None]
  - BLOOD MAGNESIUM DECREASED [None]
  - BLOOD POTASSIUM DECREASED [None]
  - BLOOD PRESSURE DECREASED [None]
  - CLOSTRIDIUM DIFFICILE COLITIS [None]
  - DECUBITUS ULCER [None]
  - DRUG INEFFECTIVE [None]
  - DYSPNOEA EXERTIONAL [None]
  - GASTRITIS [None]
  - GOUT [None]
  - ILEUS [None]
  - LETHARGY [None]
  - MALAISE [None]
  - NAUSEA [None]
  - NEURODERMATITIS [None]
  - OPEN WOUND [None]
  - PERITONITIS BACTERIAL [None]
  - PRURITUS [None]
  - PYREXIA [None]
  - RENAL FAILURE CHRONIC [None]
  - SEPTIC SHOCK [None]
  - SKIN ULCER [None]
